FAERS Safety Report 5506740-5 (Version None)
Quarter: 2007Q4

REPORT INFORMATION
  Report Type: 
  Country: None (occurrence: None)
  Receive Date: 20071101
  Receipt Date: 20071005
  Transmission Date: 20080405
  Serious: Yes (Other)
  Sender: FDA-Public Use
  Company Number: 60618

PATIENT
  Age: 61 Year
  Sex: Female

DRUGS (1)
  1. IBUPROFEN [Suspect]

REACTIONS (7)
  - DRUG ERUPTION [None]
  - GLOSSODYNIA [None]
  - ORAL MUCOSAL ERYTHEMA [None]
  - ORAL PAIN [None]
  - PAIN [None]
  - RASH ERYTHEMATOUS [None]
  - RASH MACULAR [None]
